FAERS Safety Report 15418638 (Version 4)
Quarter: 2019Q1

REPORT INFORMATION
  Report Type: Spontaneous
  Country: US (occurrence: US)
  Receive Date: 20180924
  Receipt Date: 20190222
  Transmission Date: 20190417
  Serious: Yes (Hospitalization, Other)
  Sender: FDA-Public Use
  Company Number: US-JAZZ-JPI-P-032407

PATIENT
  Age: 42 Year
  Sex: Male

DRUGS (3)
  1. XYREM [Suspect]
     Active Substance: SODIUM OXYBATE
     Dosage: 4.5 G, BID
     Route: 048
     Dates: start: 20111128
  2. XYREM [Suspect]
     Active Substance: SODIUM OXYBATE
     Indication: NARCOLEPSY
     Route: 048
     Dates: start: 20110620, end: 2011
  3. XYREM [Suspect]
     Active Substance: SODIUM OXYBATE
     Indication: CATAPLEXY
     Dosage: UNKNOWN SINGLE (UNSPECIFIED DOSE)
     Route: 048
     Dates: start: 2011, end: 2011

REACTIONS (16)
  - Concussion [Unknown]
  - Malaise [Unknown]
  - Neck pain [Not Recovered/Not Resolved]
  - Mental impairment [Recovered/Resolved]
  - Cataplexy [Recovering/Resolving]
  - Limb discomfort [Not Recovered/Not Resolved]
  - Victim of crime [Unknown]
  - Intervertebral disc protrusion [Not Recovered/Not Resolved]
  - Musculoskeletal pain [Not Recovered/Not Resolved]
  - Fatigue [Unknown]
  - Dizziness [Unknown]
  - Seizure [Unknown]
  - Fall [Recovered/Resolved]
  - Speech disorder [Recovered/Resolved]
  - Condition aggravated [Not Recovered/Not Resolved]
  - Mood swings [Unknown]

NARRATIVE: CASE EVENT DATE: 20130501
